FAERS Safety Report 6886305-3 (Version None)
Quarter: 2010Q3

REPORT INFORMATION
  Report Type: 
  Country: None (occurrence: None)
  Receive Date: 20100729
  Receipt Date: 20090501
  Transmission Date: 20110219
  Serious: No
  Sender: FDA-Public Use
  Company Number: US-PFIZER INC-2009186587

PATIENT

DRUGS (1)
  1. CELEBREX [Suspect]
     Indication: MUSCLE SPASMS
     Dosage: 200 MG, 1X/DAY

REACTIONS (1)
  - DRUG INEFFECTIVE FOR UNAPPROVED INDICATION [None]
